FAERS Safety Report 8344391-8 (Version None)
Quarter: 2012Q1

REPORT INFORMATION
  Report Type: 
  Country: None (occurrence: None)
  Receive Date: 20120315
  Receipt Date: 20110525
  Transmission Date: 20120608
  Serious: No
  Sender: FDA-Public Use
  Company Number: PHHY2011US40221

PATIENT
  Sex: Female

DRUGS (10)
  1. AMITRIPTYLINE HCL [Concomitant]
  2. METFORMIN HCL [Concomitant]
  3. HUMULIN (INSULIN HUMAN, INSULIN ISOPHANE, HUMAN BIOSYNTHETIC) [Concomitant]
  4. SERTRALINE HYDROCHLORIDE [Concomitant]
  5. ALBUTEROL [Concomitant]
  6. ADVAIR HFA [Concomitant]
  7. SINGULAIR [Concomitant]
  8. GILENYA [Suspect]
     Indication: MULTIPLE SCLEROSIS
     Dosage: 0.5 MG, QD, ORAL
     Route: 048
     Dates: start: 20110131
  9. LISINOPRIL [Concomitant]
  10. LEVOXYL [Concomitant]

REACTIONS (1)
  - FATIGUE [None]
